FAERS Safety Report 12872104 (Version 1)
Quarter: 2016Q4

REPORT INFORMATION
  Report Type: Spontaneous
  Country: US (occurrence: US)
  Receive Date: 20161021
  Receipt Date: 20161021
  Transmission Date: 20170207
  Serious: No
  Sender: FDA-Public Use
  Company Number: US-009507513-1610USA010434

PATIENT
  Sex: Female
  Weight: 63.49 kg

DRUGS (1)
  1. NEXPLANON [Suspect]
     Active Substance: ETONOGESTREL
     Indication: CONTRACEPTION
     Dosage: UNKNOWN DOSE, 3 YEARS
     Route: 059

REACTIONS (5)
  - Paraesthesia [Unknown]
  - Emotional disorder [Unknown]
  - Dry mouth [Unknown]
  - Acne [Unknown]
  - Pruritus [Unknown]
